FAERS Safety Report 20576571 (Version 1)
Quarter: 2022Q1

REPORT INFORMATION
  Report Type: Spontaneous
  Country: CN (occurrence: CN)
  Receive Date: 20220310
  Receipt Date: 20220310
  Transmission Date: 20220423
  Serious: Yes (Hospitalization, Other)
  Sender: FDA-Public Use
  Company Number: CN-ORGANON-O2203CHN000254

PATIENT
  Age: 58 Year
  Sex: Male
  Weight: 75 kg

DRUGS (5)
  1. EZETIMIBE [Suspect]
     Active Substance: EZETIMIBE
     Indication: Hypercholesterolaemia
     Dosage: 10 MILLIGRAM, QD
     Route: 048
     Dates: start: 20220101, end: 20220216
  2. PROBUCOL [Suspect]
     Active Substance: PROBUCOL
     Indication: Hypercholesterolaemia
     Dosage: 0.5 GRAM, BID
     Route: 048
     Dates: start: 20220101, end: 20220209
  3. TICAGRELOR [Suspect]
     Active Substance: TICAGRELOR
     Indication: Cerebral infarction
     Dosage: 40 MILLIGRAM, QD
     Route: 048
     Dates: start: 20220131, end: 20220210
  4. COLCHICINE [Suspect]
     Active Substance: COLCHICINE
     Indication: Gout
     Dosage: 0.5 MILLIGRAM, TID
     Route: 048
     Dates: start: 20220209, end: 20220214
  5. FEBUXOSTAT [Suspect]
     Active Substance: FEBUXOSTAT
     Indication: Gout
     Dosage: UNK
     Dates: start: 20220209, end: 20220214

REACTIONS (5)
  - Liver injury [Unknown]
  - Asthenia [Unknown]
  - Decreased appetite [Unknown]
  - Night sweats [Unknown]
  - Gouty arthritis [Recovered/Resolved]

NARRATIVE: CASE EVENT DATE: 20220201
